FAERS Safety Report 5296441-3 (Version None)
Quarter: 2007Q2

REPORT INFORMATION
  Report Type: 
  Country: None (occurrence: None)
  Receive Date: 20070413
  Receipt Date: 20070403
  Transmission Date: 20071010
  Serious: Yes (Other)
  Sender: FDA-Public Use
  Company Number: US-SANOFI-SYNTHELABO-A03200606804

PATIENT
  Age: 63 Year
  Sex: Female
  Weight: 73.9 kg

DRUGS (4)
  1. AMBIEN [Suspect]
     Indication: INSOMNIA
     Route: 048
     Dates: start: 20061105, end: 20061101
  2. TOPAMAX [Concomitant]
     Route: 048
     Dates: start: 20010101
  3. CELEXA [Concomitant]
     Dosage: UNK
     Route: 048
     Dates: start: 20060901
  4. INDOCIN [Concomitant]
     Route: 054

REACTIONS (14)
  - AMNESIA [None]
  - CONVULSION [None]
  - DIARRHOEA [None]
  - DIZZINESS [None]
  - FATIGUE [None]
  - HOT FLUSH [None]
  - INFLUENZA LIKE ILLNESS [None]
  - INSOMNIA [None]
  - MALAISE [None]
  - MIGRAINE [None]
  - MUSCULAR WEAKNESS [None]
  - NAUSEA [None]
  - NERVOUSNESS [None]
  - RHINITIS [None]
